FAERS Safety Report 5307610-8 (Version None)
Quarter: 2007Q2

REPORT INFORMATION
  Report Type: 
  Country: None (occurrence: None)
  Receive Date: 20070425
  Receipt Date: 20070413
  Transmission Date: 20071010
  Serious: Yes (Death)
  Sender: FDA-Public Use
  Company Number: JP-SANOFI-SYNTHELABO-A01200704180

PATIENT
  Sex: Female
  Weight: 49 kg

DRUGS (7)
  1. POLARAMINE [Concomitant]
     Indication: HYPERSENSITIVITY
     Route: 041
     Dates: start: 20070328
  2. DECADRON [Concomitant]
     Indication: PREMEDICATION
     Route: 041
     Dates: start: 20061221, end: 20070328
  3. KYTRIL [Concomitant]
     Indication: PREMEDICATION
     Route: 041
     Dates: start: 20061221, end: 20070328
  4. ISOVORIN [Concomitant]
     Route: 041
     Dates: start: 20070328, end: 20070329
  5. FOY [Concomitant]
     Indication: DISSEMINATED INTRAVASCULAR COAGULATION
     Route: 041
     Dates: start: 20070406, end: 20070410
  6. FLUOROURACIL [Suspect]
     Indication: COLON CANCER
     Dosage: 408MG/BODY=300MG/M2 IN BOLUS THEN 2720MG/BODY=2000MG/M2 AS CONTINUOUS INFUSION.
     Route: 041
     Dates: start: 20070328, end: 20070329
  7. OXALIPLATIN [Suspect]
     Indication: COLON CANCER
     Route: 041
     Dates: start: 20070328, end: 20070328

REACTIONS (1)
  - INTERSTITIAL LUNG DISEASE [None]
